FAERS Safety Report 4392268-5 (Version None)
Quarter: 2004Q3

REPORT INFORMATION
  Report Type: 
  Country: None (occurrence: None)
  Receive Date: 20040702
  Receipt Date: 20040218
  Transmission Date: 20050211
  Serious: Yes (Other)
  Sender: FDA-Public Use
  Company Number: 2004UW02882

PATIENT
  Sex: Female

DRUGS (1)
  1. CRESTOR [Suspect]
     Dosage: 10 MG PO
     Route: 048

REACTIONS (5)
  - BURNING SENSATION [None]
  - CHEILITIS [None]
  - DIARRHOEA [None]
  - DYSGEUSIA [None]
  - GLOSSITIS [None]
